FAERS Safety Report 5382171-6 (Version None)
Quarter: 2007Q3

REPORT INFORMATION
  Report Type: 
  Country: None (occurrence: None)
  Receive Date: 20070709
  Receipt Date: 20070627
  Transmission Date: 20080115
  Serious: Yes (Life-Threatening)
  Sender: FDA-Public Use
  Company Number: FR-PFIZER INC-2007053080

PATIENT
  Age: 69 Year
  Sex: Female

DRUGS (2)
  1. DALACINE IV [Suspect]
     Route: 042
     Dates: start: 20070531, end: 20070604
  2. METOPIMAZINE [Suspect]
     Route: 042
     Dates: start: 20070531, end: 20070604

REACTIONS (5)
  - BLOOD PRESSURE DECREASED [None]
  - DYSPNOEA [None]
  - LIP SWELLING [None]
  - TACHYCARDIA [None]
  - THROAT TIGHTNESS [None]
